FAERS Safety Report 4509393-8 (Version None)
Quarter: 2004Q4

REPORT INFORMATION
  Report Type: 
  Country: None (occurrence: None)
  Receive Date: 20041025
  Receipt Date: 20040623
  Transmission Date: 20050328
  Serious: Yes (Hospitalization)
  Sender: FDA-Public Use
  Company Number: US-JNJFOC-20040607093

PATIENT
  Age: 37 Year
  Sex: Female
  Weight: 65.7716 kg

DRUGS (7)
  1. INFLIXIMAB (INFLIXIMAB, RECOMBINANT) LYOPHILIZED POWDER [Suspect]
     Indication: CROHN'S DISEASE
     Dosage: 5 MG/KG, INTRAVENOUS
     Route: 042
     Dates: start: 20030604
  2. INFLIXIMAB (INFLIXIMAB, RECOMBINANT) LYOPHILIZED POWDER [Suspect]
     Indication: CROHN'S DISEASE
     Dosage: 5 MG/KG, INTRAVENOUS
     Route: 042
     Dates: start: 20040609
  3. MERCAPTOPURINE [Concomitant]
  4. MESALAMINE [Concomitant]
  5. ANTIBIOTICS (ANTIBIOTICS) [Concomitant]
  6. BUDESONIDE (BUDESONIDE) [Concomitant]
  7. PREDNISONE [Concomitant]

REACTIONS (1)
  - CROHN'S DISEASE [None]
